FAERS Safety Report 10158324 (Version 1)
Quarter: 2014Q2

REPORT INFORMATION
  Report Type: Spontaneous
  Country: US (occurrence: US)
  Receive Date: 20140507
  Receipt Date: 20140507
  Transmission Date: 20141212
  Serious: No
  Sender: FDA-Public Use
  Company Number: US-009507513-1405USA002130

PATIENT
  Sex: Female

DRUGS (1)
  1. COZAAR [Suspect]
     Dosage: UNK
     Route: 048
     Dates: start: 201401

REACTIONS (2)
  - Blood glucose abnormal [Unknown]
  - Drug ineffective [Unknown]
